FAERS Safety Report 9460012 (Version 3)
Quarter: 2013Q3

REPORT INFORMATION
  Report Type: Report from Study
  Country: US (occurrence: US)
  Receive Date: 20130815
  Receipt Date: 20130930
  Transmission Date: 20140515
  Serious: Yes (Hospitalization)
  Sender: FDA-Public Use
  Company Number: US-JNJFOC-20130805507

PATIENT
  Age: 49 Year
  Sex: Male
  Weight: 99.79 kg

DRUGS (6)
  1. REMICADE [Suspect]
     Indication: PSORIASIS
     Route: 042
     Dates: start: 20130911
  2. REMICADE [Suspect]
     Indication: PSORIASIS
     Route: 042
     Dates: start: 20130610
  3. REMICADE [Suspect]
     Indication: PSORIASIS
     Route: 042
     Dates: start: 200903
  4. METHOTREXATE [Suspect]
     Indication: PRODUCT USED FOR UNKNOWN INDICATION
     Route: 065
  5. CORTICOSTEROIDS [Concomitant]
     Route: 065
  6. ACETAMINOPHEN [Concomitant]
     Route: 065

REACTIONS (1)
  - Pneumonia legionella [Recovered/Resolved]
